FAERS Safety Report 16590076 (Version 1)
Quarter: 2019Q3

REPORT INFORMATION
  Report Type: Spontaneous
  Country: US (occurrence: US)
  Receive Date: 20190604
  Receipt Date: 20190604
  Transmission Date: 20191004
  Serious: Yes (Hospitalization)
  Sender: FDA-Public Use
  Company Number: None

PATIENT
  Sex: Male

DRUGS (16)
  1. OMEPRAZOLE TAB [Concomitant]
  2. MONTELUKAST TAB [Concomitant]
  3. TYLENOL TAB [Concomitant]
  4. NOVOLOG INJ FLEXPEN [Concomitant]
  5. VITAMIN D CAP [Concomitant]
  6. ADVAIR DISKU [Concomitant]
  7. ASPIRIN LOW TAB [Concomitant]
  8. METFORMIN TAB [Concomitant]
  9. TERAZOSIN CAP [Concomitant]
  10. LEVEMIR INJ FLEXTOUC [Concomitant]
  11. ESBRIET [Concomitant]
     Active Substance: PIRFENIDONE
  12. FLUTICASONE SPR [Concomitant]
  13. LEVOTHYROXIN TAB [Concomitant]
  14. ESBRIET [Suspect]
     Active Substance: PIRFENIDONE
     Indication: IDIOPATHIC PULMONARY FIBROSIS
     Route: 048
  15. DUTASTERIDE CAP [Concomitant]
  16. SIMVASTATIN TAB [Concomitant]
     Active Substance: SIMVASTATIN

REACTIONS (1)
  - Pulmonary embolism [None]
